FAERS Safety Report 7804921-9 (Version None)
Quarter: 2011Q4

REPORT INFORMATION
  Report Type: 
  Country: None (occurrence: None)
  Receive Date: 20111010
  Receipt Date: 20110926
  Transmission Date: 20120403
  Serious: Yes (Hospitalization, Other)
  Sender: FDA-Public Use
  Company Number: US-BAYER-2011-027489

PATIENT
  Age: 58 Year
  Sex: Female
  Weight: 72.58 kg

DRUGS (28)
  1. ATACAND [Concomitant]
  2. XOPENEX [Concomitant]
  3. BENADRYL [Concomitant]
  4. LISINOPRIL [Concomitant]
  5. BUSPAR [Concomitant]
  6. DALTEPARIN SODIUM [Concomitant]
  7. BECLOMETHASONE DIPROPIONATE [Concomitant]
  8. TRAZODONE HYDROCHLORIDE [Concomitant]
  9. NIACIN [Concomitant]
  10. VALIUM [Concomitant]
  11. CITALOPRAM [Concomitant]
  12. CARVEDILOL [Concomitant]
  13. ACETYLSALICYLIC ACID SRT [Suspect]
     Indication: ACUTE CORONARY SYNDROME
     Route: 048
     Dates: start: 20100720, end: 20110318
  14. CLOPIDOGREL [Suspect]
     Indication: ACUTE CORONARY SYNDROME
     Route: 048
     Dates: start: 20090904, end: 20110318
  15. AMLODIPINE [Concomitant]
  16. GUAIFENESIN [Concomitant]
  17. RIVAROXABAN [Suspect]
     Dosage: 5 MG, BID
     Route: 048
     Dates: start: 20090905, end: 20110515
  18. ADVAIR DISKUS 100/50 [Concomitant]
  19. ISOSORBIDE MONONITRATE [Concomitant]
  20. ALBUTEROL [Concomitant]
  21. RIVAROXABAN [Suspect]
     Indication: ACUTE CORONARY SYNDROME
     Dosage: 5 MG, BID
     Route: 048
     Dates: start: 20090904, end: 20090904
  22. ACETYLSALICYLIC ACID SRT [Suspect]
     Dosage: 81 MG, HS
     Route: 048
     Dates: start: 20110402
  23. CRESTOR [Concomitant]
  24. METOPROLOL TARTRATE [Concomitant]
  25. SIMVASTATIN [Concomitant]
  26. MORPHINE [Concomitant]
  27. INFLUENZA VACCINE [Concomitant]
  28. PEPCID [Concomitant]

REACTIONS (3)
  - PERITONEAL HAEMORRHAGE [None]
  - HEMIPARESIS [None]
  - GROIN INFECTION [None]
